FAERS Safety Report 6670896-1 (Version None)
Quarter: 2010Q2

REPORT INFORMATION
  Report Type: 
  Country: None (occurrence: None)
  Receive Date: 20100407
  Receipt Date: 20100322
  Transmission Date: 20101027
  Serious: No
  Sender: FDA-Public Use
  Company Number: US-B.I. PHARMACEUTICALS,INC./RIDGEFIELD-2010-BP-03382BP

PATIENT
  Age: 58 Year
  Sex: Male

DRUGS (6)
  1. MICARDIS HCT [Suspect]
     Indication: HYPERTENSION
     Route: 048
  2. PRILOSEC [Concomitant]
     Indication: BARRETT'S OESOPHAGUS
  3. SIMVASTATIN [Concomitant]
     Indication: BLOOD CHOLESTEROL INCREASED
  4. TOPROL-XL [Concomitant]
     Indication: HYPERTENSION
     Dosage: 100 MG
  5. ASPIRIN [Concomitant]
     Indication: PROPHYLAXIS
     Dosage: 81 MG
  6. VITAMIN B COMPLEX CAP [Concomitant]
     Indication: NERVE INJURY

REACTIONS (1)
  - NEUROPATHY PERIPHERAL [None]
